FAERS Safety Report 8397540-X (Version None)
Quarter: 2012Q2

REPORT INFORMATION
  Report Type: 
  Country: None (occurrence: None)
  Receive Date: 20120529
  Receipt Date: 20120529
  Transmission Date: 20120825
  Serious: Yes (Hospitalization)
  Sender: FDA-Public Use
  Company Number: None

PATIENT
  Age: 81 Year
  Sex: Male

DRUGS (24)
  1. ALBUTEROL [Concomitant]
  2. OMEPRAZOLE [Concomitant]
  3. ZINC SULFATE [Concomitant]
  4. RENAVITE [Concomitant]
  5. ASCORBIC ACID [Concomitant]
  6. CALCIUM CITRATE/VITAMIN D [Concomitant]
  7. REVLIMID [Suspect]
     Indication: MULTIPLE MYELOMA
     Dosage: 5 MG QD X 21/28 DAYS BY MOUTH
     Route: 048
     Dates: start: 20120509
  8. REVLIMID [Suspect]
     Indication: MULTIPLE MYELOMA
     Dosage: 5 MG QD X 21/28 DAYS BY MOUTH
     Route: 048
     Dates: start: 20120327, end: 20120407
  9. MOMETASONE FUROATE [Concomitant]
  10. BISACODYL [Concomitant]
  11. DEXAMETHASONE [Concomitant]
  12. FUROSEMIDE [Concomitant]
  13. SEVELAMER [Concomitant]
  14. DOCUSATE SODIUM [Concomitant]
  15. ATENOLOL [Concomitant]
  16. TRAZODONE HCL [Concomitant]
  17. MIRTAZAPINE [Concomitant]
  18. FERROUS SULFATE TAB [Concomitant]
  19. AMLODIPINE [Concomitant]
  20. IPRATROPIUM BROMIDE [Concomitant]
  21. WARFARIN SODIUM [Concomitant]
  22. SIMVASTATIN [Concomitant]
  23. ACYCLOVIR [Concomitant]
  24. ALLOPURINOL [Concomitant]

REACTIONS (2)
  - PAIN IN EXTREMITY [None]
  - DEEP VEIN THROMBOSIS [None]
